FAERS Safety Report 11525526 (Version 1)
Quarter: 2015Q3

REPORT INFORMATION
  Report Type: Spontaneous
  Country: US (occurrence: US)
  Receive Date: 20150918
  Receipt Date: 20150918
  Transmission Date: 20151125
  Serious: Yes (Other)
  Sender: FDA-Public Use
  Company Number: US-TAKEDA-TPA2012A00620

PATIENT

DRUGS (7)
  1. DIABETA [Concomitant]
     Active Substance: GLYBURIDE
     Dates: start: 2010
  2. NOVOLOG [Concomitant]
     Active Substance: INSULIN ASPART
  3. ASPIRINE [Concomitant]
     Active Substance: ASPIRIN
  4. GLARGINE/LANTUS [Concomitant]
     Dates: start: 2011
  5. ACTOS [Suspect]
     Active Substance: PIOGLITAZONE HYDROCHLORIDE
     Indication: TYPE 2 DIABETES MELLITUS
     Dates: start: 200708, end: 200809
  6. GLYBURIDE. [Concomitant]
     Active Substance: GLYBURIDE
  7. METFORMIN [Concomitant]
     Active Substance: METFORMIN HYDROCHLORIDE
     Dates: start: 2006, end: 2011

REACTIONS (2)
  - Transitional cell carcinoma [Unknown]
  - Haematinuria [Unknown]

NARRATIVE: CASE EVENT DATE: 20091207
